FAERS Safety Report 25211723 (Version 2)
Quarter: 2025Q2

REPORT INFORMATION
  Report Type: Spontaneous
  Country: GB (occurrence: GB)
  Receive Date: 20250418
  Receipt Date: 20250423
  Transmission Date: 20250717
  Serious: Yes (Hospitalization, Other)
  Sender: GENMAB
  Company Number: GB-ABBVIE-6163443

PATIENT

DRUGS (15)
  1. EPKINLY [Suspect]
     Active Substance: EPCORITAMAB-BYSP
     Indication: Product used for unknown indication
     Dosage: 0.16 MILLIGRAM QD (FOR 1 DOSE STORE IN REFRIGERATOR AT 2-8C , PROTECT FROM LIGHT)
     Route: 058
     Dates: start: 20241119
  2. EPKINLY [Suspect]
     Active Substance: EPCORITAMAB-BYSP
     Route: 058
  3. EPKINLY [Suspect]
     Active Substance: EPCORITAMAB-BYSP
     Dosage: 48 MILLIGRAM, QD
     Route: 058
     Dates: start: 20241210
  4. ACYCLOVIR [Concomitant]
     Active Substance: ACYCLOVIR
     Indication: Product used for unknown indication
     Dosage: 400 MILLIGRAM,BID
     Route: 065
  5. COTRIMOXAZOLE [Concomitant]
     Active Substance: SULFAMETHOXAZOLE\TRIMETHOPRIM
     Indication: Product used for unknown indication
     Route: 065
  6. DEXAMETHASONE [Concomitant]
     Active Substance: DEXAMETHASONE
     Indication: Neoplasm prophylaxis
     Dosage: 16 MILLIGRAM QD (1 DOSE ADMINISTERED 30-120 MINS PRIOR TO EPCORTIMAB)
     Route: 048
     Dates: start: 20241119
  7. DEXAMETHASONE [Concomitant]
     Active Substance: DEXAMETHASONE
     Route: 048
     Dates: start: 20241210
  8. ACETAMINOPHEN [Concomitant]
     Active Substance: ACETAMINOPHEN
     Indication: Product used for unknown indication
     Dosage: 1000 MILLIGRAM,QD
     Route: 048
     Dates: start: 20241210
  9. ACETAMINOPHEN [Concomitant]
     Active Substance: ACETAMINOPHEN
     Route: 048
  10. TOCILIZUMAB [Concomitant]
     Active Substance: TOCILIZUMAB
     Indication: Product used for unknown indication
     Route: 065
     Dates: start: 20240209
  11. RASBURICASE [Concomitant]
     Active Substance: RASBURICASE
     Indication: Hyperuricaemia
     Route: 042
     Dates: start: 20241210
  12. RASBURICASE [Concomitant]
     Active Substance: RASBURICASE
     Route: 042
  13. CHLORPHENIRAMINE MALEATE [Concomitant]
     Active Substance: CHLORPHENIRAMINE MALEATE
     Indication: Neoplasm prophylaxis
     Dosage: 4 MILLIGRAM QD
     Route: 048
     Dates: start: 20241210
  14. CHLORPHENIRAMINE MALEATE [Concomitant]
     Active Substance: CHLORPHENIRAMINE MALEATE
     Dosage: 4 MILLIGRAM, QD (1 DOSE ADMINISTERED 30-120 MINS PRIOR TO EPCORTIMAB)
     Route: 048
     Dates: start: 20241119
  15. ALLOPURINOL SODIUM [Concomitant]
     Active Substance: ALLOPURINOL SODIUM
     Indication: Product used for unknown indication
     Dosage: 300 MILLIGRAM, QD
     Route: 048

REACTIONS (4)
  - Neoplasm [Unknown]
  - Acute kidney injury [Unknown]
  - COVID-19 [Unknown]
  - Pyrexia [Unknown]
